FAERS Safety Report 5387130-5 (Version None)
Quarter: 2007Q3

REPORT INFORMATION
  Report Type: 
  Country: None (occurrence: None)
  Receive Date: 20070711
  Receipt Date: 20070702
  Transmission Date: 20080115
  Serious: Yes (Hospitalization)
  Sender: FDA-Public Use
  Company Number: 2007BI014132

PATIENT
  Age: 24 Year
  Sex: Female

DRUGS (1)
  1. AVONEX [Suspect]
     Indication: MULTIPLE SCLEROSIS
     Dosage: 30 UG;QW IM
     Route: 030
     Dates: start: 20051001

REACTIONS (2)
  - FALL [None]
  - MULTIPLE SCLEROSIS RELAPSE [None]
